FAERS Safety Report 14984210 (Version 2)
Quarter: 2023Q4

REPORT INFORMATION
  Report Type: Report from Study
  Country: FR (occurrence: FR)
  Receive Date: 20180607
  Receipt Date: 20231026
  Transmission Date: 20240110
  Serious: Yes (Death, Hospitalization, Other)
  Sender: FDA-Public Use
  Company Number: FR-JAZZ-2017-FR-015421

PATIENT

DRUGS (17)
  1. DEFITELIO [Suspect]
     Active Substance: DEFIBROTIDE SODIUM
     Indication: Venoocclusive disease
     Dosage: 25 MILLIGRAM/KILOGRAM/DAY
     Route: 042
     Dates: start: 20160912, end: 2016
  2. DEFITELIO [Suspect]
     Active Substance: DEFIBROTIDE SODIUM
     Dosage: 18.75 MILLIGRAM/KILOGRAM/DAY
     Route: 042
     Dates: start: 20161107, end: 2016
  3. DEFITELIO [Suspect]
     Active Substance: DEFIBROTIDE SODIUM
     Dosage: 12.5 MILLIGRAM/KILOGRAM/DAY
     Route: 042
     Dates: start: 2016, end: 20161113
  4. CYCLOSPORINE [Concomitant]
     Active Substance: CYCLOSPORINE
     Indication: Prophylaxis against graft versus host disease
     Dosage: 24 MG, QD
     Route: 042
     Dates: start: 20160829, end: 20161123
  5. HEPARIN [Concomitant]
     Active Substance: HEPARIN SODIUM
     Indication: Prophylaxis
     Dosage: 770 IU, QD
     Route: 042
     Dates: start: 20160823, end: 20161123
  6. FUROSEMIDE [Concomitant]
     Active Substance: FUROSEMIDE
     Indication: Diuretic therapy
     Dosage: 20 MG, QD
     Route: 042
     Dates: start: 20160904
  7. ACYCLOVIR [Concomitant]
     Active Substance: ACYCLOVIR
     Indication: Antiviral treatment
     Dosage: 100 MG, QD
     Route: 048
     Dates: start: 20160831
  8. CILASTATIN SODIUM\IMIPENEM [Concomitant]
     Active Substance: CILASTATIN SODIUM\IMIPENEM
     Indication: Antibiotic therapy
     Dosage: 120 MG, QD
     Route: 042
     Dates: start: 20160903, end: 20160923
  9. AMOXICILLIN [Concomitant]
     Active Substance: AMOXICILLIN
     Indication: Antibiotic therapy
     Dosage: 400 MG, QD
     Route: 048
     Dates: start: 20160910, end: 20160923
  10. ONDANSETRON [Concomitant]
     Active Substance: ONDANSETRON
     Indication: Antiemetic supportive care
     Dosage: 4 MG, QD
     Route: 048
     Dates: start: 20160822, end: 20161112
  11. ESOMEPRAZOLE MAGNESIUM [Concomitant]
     Active Substance: ESOMEPRAZOLE\ESOMEPRAZOLE MAGNESIUM\ESOMEPRAZOLE MAGNESIUM DIHYDRATE
     Indication: Prophylaxis against gastrointestinal ulcer
     Dosage: 10 MG, QD
     Route: 048
     Dates: start: 20160822
  12. MORPHINE [Concomitant]
     Active Substance: MORPHINE
     Indication: Analgesic therapy
     Dosage: UNK
     Route: 042
     Dates: start: 20160903
  13. FLAGYL [Concomitant]
     Active Substance: METRONIDAZOLE\METRONIDAZOLE HYDROCHLORIDE
     Indication: Antiviral treatment
     Dosage: 225 MG, QD
     Route: 042
     Dates: start: 20160902, end: 20160920
  14. COLISTIN SULFATE [Concomitant]
     Active Substance: COLISTIN SULFATE
     Indication: Antibiotic therapy
     Dosage: 250000 IU, QD
     Route: 048
     Dates: start: 20160823, end: 20160914
  15. CAPTOPRIL [Concomitant]
     Active Substance: CAPTOPRIL
     Indication: Blood pressure management
     Dosage: 6 MG, QD
     Route: 042
     Dates: start: 20160830, end: 20160918
  16. PHLOROGLUCINOL\1,3,5-TRIMETHOXYBENZENE [Concomitant]
     Active Substance: PHLOROGLUCINOL\1,3,5-TRIMETHOXYBENZENE
     Indication: Prophylaxis
     Dosage: 1 AMPULE, QD
     Route: 042
     Dates: start: 20160827
  17. DINOPROSTONE [Concomitant]
     Active Substance: DINOPROSTONE
     Indication: Prophylaxis
     Dosage: 65000 ?G, QD
     Route: 042
     Dates: start: 20160823, end: 20160912

REACTIONS (9)
  - Altered state of consciousness [Fatal]
  - Acute lymphocytic leukaemia [Fatal]
  - Multiple organ dysfunction syndrome [Recovered/Resolved]
  - Blood sodium increased [Not Recovered/Not Resolved]
  - Hypervolaemia [Not Recovered/Not Resolved]
  - Cholangiolitis [Recovered/Resolved]
  - Pneumonia herpes viral [Not Recovered/Not Resolved]
  - Enterobacter pneumonia [Recovered/Resolved]
  - Off label use [Unknown]

NARRATIVE: CASE EVENT DATE: 20160923
